FAERS Safety Report 21517549 (Version 5)
Quarter: 2023Q4

REPORT INFORMATION
  Report Type: Report from Study
  Country: US (occurrence: US)
  Receive Date: 20221028
  Receipt Date: 20231117
  Transmission Date: 20240110
  Serious: Yes (Hospitalization, Other)
  Sender: FDA-Public Use
  Company Number: US-ABBVIE-4177574

PATIENT
  Sex: Female

DRUGS (6)
  1. VENCLEXTA [Suspect]
     Active Substance: VENETOCLAX
     Indication: Myelodysplastic syndrome
     Dosage: TAKE ONE TABLET BY MOUTH ON DAY ONE?FORM STRENGTH 100 MILLIGRAM
     Route: 048
     Dates: start: 20221028
  2. VENCLEXTA [Suspect]
     Active Substance: VENETOCLAX
     Indication: Myelodysplastic syndrome
     Dosage: FORM STRENGTH: 100 MILLIGRAM?TWO TABLETS ON DAY TWO
     Route: 048
  3. VENCLEXTA [Suspect]
     Active Substance: VENETOCLAX
     Indication: Myelodysplastic syndrome
     Dosage: FORM 100 MG?TAKE ONE TABLET BY MOUTH ON DAY ONE?LAST ADMIN DATE- 2022
     Route: 048
     Dates: start: 202208
  4. VENCLEXTA [Suspect]
     Active Substance: VENETOCLAX
     Indication: Myelodysplastic syndrome
     Dosage: FORM STRENGTH: 100 MILLIGRAM?TAKE FOUR TABLETS DAILY STARTING CYCLE TWO TAKE ON DAYS 1-28 OF  EVE...
     Route: 048
  5. VENCLEXTA [Suspect]
     Active Substance: VENETOCLAX
     Indication: Myelodysplastic syndrome
     Route: 048
  6. VARITHENA [Concomitant]
     Active Substance: POLIDOCANOL
     Indication: Product used for unknown indication

REACTIONS (9)
  - Leukaemia [Unknown]
  - Off label use [Unknown]
  - Cardiac disorder [Unknown]
  - Feeling abnormal [Unknown]
  - Drug hypersensitivity [Unknown]
  - Liver function test abnormal [Unknown]
  - Cellulitis [Unknown]
  - Therapeutic product effect incomplete [Unknown]
  - Hypoacusis [Unknown]

NARRATIVE: CASE EVENT DATE: 20220101
